FAERS Safety Report 11696504 (Version 1)
Quarter: 2015Q4

REPORT INFORMATION
  Report Type: Spontaneous
  Country: US (occurrence: US)
  Receive Date: 20151104
  Receipt Date: 20151104
  Transmission Date: 20160304
  Serious: Yes (Congenital Anomaly, Other)
  Sender: FDA-Public Use
  Company Number: US-IMPAX LABORATORIES, INC-2015-IPXL-01085

PATIENT

DRUGS (3)
  1. PHENYTOIN. [Suspect]
     Active Substance: PHENYTOIN
     Indication: PRODUCT USED FOR UNKNOWN INDICATION
     Route: 064
  2. CLONAZEPAM. [Suspect]
     Active Substance: CLONAZEPAM
     Indication: PRODUCT USED FOR UNKNOWN INDICATION
     Route: 064
  3. DIVALPROEX SODIUM ER [Suspect]
     Active Substance: DIVALPROEX SODIUM
     Indication: PRODUCT USED FOR UNKNOWN INDICATION
     Route: 064

REACTIONS (6)
  - Dystonia [Unknown]
  - Microcephaly [Unknown]
  - Dysmorphism [Unknown]
  - Strabismus [Unknown]
  - Foetal exposure during pregnancy [Unknown]
  - Atrial septal defect [Unknown]
